FAERS Safety Report 9104088 (Version 1)
Quarter: 2013Q1

REPORT INFORMATION
  Report Type: Spontaneous
  Country: CH (occurrence: CH)
  Receive Date: 20130219
  Receipt Date: 20130219
  Transmission Date: 20140127
  Serious: Yes (Other)
  Sender: FDA-Public Use
  Company Number: CH-TEVA-385580ISR

PATIENT
  Age: 52 Year
  Sex: Female
  Weight: 64 kg

DRUGS (7)
  1. VINCRISTIN [Suspect]
     Indication: ACUTE LYMPHOCYTIC LEUKAEMIA
     Dosage: 2 MILLIGRAM DAILY; FIRST DOSE ON 29-DEC-2012, SECOND DOSE ON 05-JAN-2013
     Route: 041
     Dates: start: 20121229
  2. DEXAMETHASONE [Suspect]
     Indication: ACUTE LYMPHOCYTIC LEUKAEMIA
     Route: 048
     Dates: start: 20121229
  3. MABTHERA [Suspect]
     Indication: ACUTE LYMPHOCYTIC LEUKAEMIA
     Dosage: 700 MILLIGRAM DAILY;
     Route: 041
     Dates: start: 20121229
  4. METHOTREXATE FAMOS [Concomitant]
     Indication: ACUTE LYMPHOCYTIC LEUKAEMIA
     Route: 037
     Dates: start: 20121228
  5. CYTOSAR [Concomitant]
     Indication: ACUTE LYMPHOCYTIC LEUKAEMIA
     Dosage: FIRST DOSE
     Route: 037
     Dates: start: 20121228
  6. CYTOSAR [Concomitant]
     Dosage: SECOND DOSE
     Route: 037
     Dates: start: 20130104
  7. GLIVEC [Concomitant]
     Indication: ACUTE LYMPHOCYTIC LEUKAEMIA
     Dosage: 800 MILLIGRAM DAILY; ONGOING
     Route: 048
     Dates: start: 20121229

REACTIONS (1)
  - Disseminated intravascular coagulation [Recovering/Resolving]
